FAERS Safety Report 8790460 (Version 1)
Quarter: 2012Q4

REPORT INFORMATION
  Report Type: Spontaneous
  Country: US (occurrence: None)
  Receive Date: 20120911
  Receipt Date: 20120911
  Transmission Date: 20130627
  Serious: Yes (Hospitalization)
  Sender: FDA-Public Use
  Company Number: None

PATIENT
  Sex: Male
  Weight: 98.6 kg

DRUGS (1)
  1. CISPLATIN [Suspect]

REACTIONS (4)
  - Embolism arterial [None]
  - Dyspnoea [None]
  - Chest pain [None]
  - Cardiac disorder [None]
